FAERS Safety Report 15175276 (Version 1)
Quarter: 2018Q3

REPORT INFORMATION
  Report Type: Spontaneous
  Country: IL (occurrence: IL)
  Receive Date: 20180720
  Receipt Date: 20180720
  Transmission Date: 20181010
  Serious: Yes (Other)
  Sender: FDA-Public Use
  Company Number: IL-MYLANLABS-2018M1053531

PATIENT
  Age: 68 Year
  Sex: Male

DRUGS (1)
  1. PREDNISONE. [Suspect]
     Active Substance: PREDNISONE
     Indication: B-CELL LYMPHOMA
     Dosage: FOR 5 DAYS EVERY MONTH
     Route: 048

REACTIONS (2)
  - Myopathy [Recovering/Resolving]
  - Dyspnoea [Recovering/Resolving]
